FAERS Safety Report 20113918 (Version 1)
Quarter: 2021Q4

REPORT INFORMATION
  Report Type: Spontaneous
  Country: US (occurrence: US)
  Receive Date: 20211125
  Receipt Date: 20211125
  Transmission Date: 20220303
  Serious: No
  Sender: FDA-Public Use
  Company Number: US-009507513-2111USA008418

PATIENT
  Age: 59 Year
  Sex: Female
  Weight: 76.8 kg

DRUGS (2)
  1. CUBICIN [Suspect]
     Active Substance: DAPTOMYCIN
     Indication: Arthropathy
     Dosage: UNK UNK, QD
     Route: 042
     Dates: start: 20211012, end: 20211103
  2. CUBICIN [Suspect]
     Active Substance: DAPTOMYCIN
     Indication: Bone disorder

REACTIONS (3)
  - Product use in unapproved indication [Unknown]
  - No adverse event [Unknown]
  - Recalled product [Unknown]
